FAERS Safety Report 5242890-9 (Version None)
Quarter: 2007Q1

REPORT INFORMATION
  Report Type: 
  Country: None (occurrence: None)
  Receive Date: 20070221
  Receipt Date: 20070215
  Transmission Date: 20070707
  Serious: Yes (Death, Other)
  Sender: FDA-Public Use
  Company Number: US-ELI_LILLY_AND_COMPANY-US200702003310

PATIENT
  Age: 80 Year
  Sex: Male

DRUGS (11)
  1. ZYPREXA [Suspect]
     Indication: AGITATION
     Dosage: 10 MG, UNK
     Route: 048
     Dates: start: 20041116, end: 20041116
  2. ZYPREXA [Suspect]
     Dosage: 15 MG, UNK
     Route: 048
     Dates: start: 20041118, end: 20041118
  3. ZYPREXA [Suspect]
     Dosage: 10 MG, UNK
     Route: 048
     Dates: start: 20041119, end: 20041120
  4. ZYPREXA [Suspect]
     Dosage: 12.5 MG, UNK
     Route: 048
     Dates: start: 20041121, end: 20041121
  5. ZYPREXA [Suspect]
     Dosage: 25 MG, UNK
     Route: 048
     Dates: start: 20041122, end: 20041122
  6. ZYPREXA [Suspect]
     Dosage: 15 MG, UNK
     Route: 048
     Dates: start: 20041123, end: 20041123
  7. ZYPREXA [Suspect]
     Dosage: 7.5 MG, UNK
     Route: 048
     Dates: start: 20041124
  8. RISPERDAL [Concomitant]
     Route: 048
     Dates: start: 20041101, end: 20050201
  9. LEXAPRO [Concomitant]
     Route: 048
     Dates: start: 20041101, end: 20050201
  10. ATIVAN [Concomitant]
     Route: 048
     Dates: start: 20071101, end: 20050201
  11. HALDOL [Concomitant]
     Dosage: UNK, UNK
     Route: 048
     Dates: start: 20041101

REACTIONS (20)
  - ABASIA [None]
  - AGITATION [None]
  - BODY TEMPERATURE INCREASED [None]
  - CEREBROVASCULAR ACCIDENT [None]
  - DYSKINESIA [None]
  - DYSPHAGIA [None]
  - EXTRAOCULAR MUSCLE PARESIS [None]
  - FACIAL PALSY [None]
  - HEMIPARESIS [None]
  - HYPOTENSION [None]
  - INCONTINENCE [None]
  - LETHARGY [None]
  - MENTAL IMPAIRMENT [None]
  - MUSCLE RIGIDITY [None]
  - MUSCLE SPASTICITY [None]
  - PNEUMONIA [None]
  - PNEUMONIA ASPIRATION [None]
  - PRESCRIBED OVERDOSE [None]
  - SPEECH DISORDER [None]
  - TREMOR [None]
